FAERS Safety Report 8764720 (Version 3)
Quarter: 2015Q2

REPORT INFORMATION
  Report Type: Spontaneous
  Country: US (occurrence: US)
  Receive Date: 20120831
  Receipt Date: 20150527
  Transmission Date: 20150821
  Serious: No
  Sender: FDA-Public Use
  Company Number: US-009507513-1208USA011789

PATIENT
  Sex: Male
  Weight: 79.37 kg

DRUGS (3)
  1. PROSCAR [Suspect]
     Active Substance: FINASTERIDE
     Indication: ALOPECIA
     Dosage: 5 MG, UNK
     Route: 048
     Dates: start: 20001221, end: 2010
  2. PROSCAR [Suspect]
     Active Substance: FINASTERIDE
     Dosage: 1.25 MG , UNK
     Route: 048
  3. FINASTERIDE. [Suspect]
     Active Substance: FINASTERIDE
     Indication: ALOPECIA
     Dosage: 5 MG, UNK
     Route: 048
     Dates: start: 20080314, end: 2011

REACTIONS (28)
  - Incisional drainage [Unknown]
  - Hyperhidrosis [Unknown]
  - Neck pain [Unknown]
  - Penile size reduced [Unknown]
  - Panic attack [Not Recovered/Not Resolved]
  - Wrong technique in drug usage process [Unknown]
  - Laser therapy [Unknown]
  - Depression [Not Recovered/Not Resolved]
  - Incisional drainage [Unknown]
  - Skin papilloma [Unknown]
  - Erectile dysfunction [Unknown]
  - Soft tissue disorder [Unknown]
  - Facial pain [Unknown]
  - Cervical radiculopathy [Unknown]
  - Muscle strain [Unknown]
  - Drug administration error [Unknown]
  - Keratomileusis [Unknown]
  - Cyst [Unknown]
  - Sexual dysfunction [Unknown]
  - Breast tenderness [Unknown]
  - Procedural complication [Unknown]
  - Nocturia [Unknown]
  - Gynaecomastia [Unknown]
  - Liposuction [Unknown]
  - Temporomandibular joint syndrome [Unknown]
  - Cognitive disorder [Unknown]
  - Anxiety [Not Recovered/Not Resolved]
  - Loss of libido [Unknown]

NARRATIVE: CASE EVENT DATE: 2006
